FAERS Safety Report 8778245 (Version 1)
Quarter: 2012Q4

REPORT INFORMATION
  Report Type: 
  Country: IT (occurrence: IT)
  Receive Date: 20120914
  Receipt Date: 20120914
  Transmission Date: 20130627
  Serious: Yes (Hospitalization)
  Sender: FDA-Public Use
  Company Number: IT-BAYER-2012-094886

PATIENT
  Age: 47 Year
  Sex: Male

DRUGS (3)
  1. CIPROXIN [Suspect]
     Dosage: Daily dose 200 mg
     Route: 042
     Dates: start: 20120830, end: 20120830
  2. TRANSTEC [Concomitant]
     Dosage: Daily dose 35 ?g
     Route: 003
  3. TACHIPIRINA [Concomitant]
     Dosage: Daily dose 1000 mg
     Route: 054

REACTIONS (3)
  - Abdominal pain [Recovering/Resolving]
  - Cholelithiasis [Recovering/Resolving]
  - Injection site rash [Recovering/Resolving]
